FAERS Safety Report 8885626 (Version 1)
Quarter: 2012Q4

REPORT INFORMATION
  Report Type: 
  Country: US (occurrence: US)
  Receive Date: 20121101
  Receipt Date: 20121101
  Transmission Date: 20130627
  Serious: No
  Sender: FDA-Public Use
  Company Number: US-PFIZER INC-2012268246

PATIENT
  Age: 59 Year
  Sex: Female

DRUGS (1)
  1. INLYTA [Suspect]
     Indication: SECONDARY MALIGNANT NEOPLASM OF KIDNEY
     Dosage: 5 mg, UNK
     Dates: start: 20120724, end: 20120926

REACTIONS (2)
  - Disease progression [Unknown]
  - Metastases to kidney [Unknown]
